FAERS Safety Report 8162706-0 (Version None)
Quarter: 2012Q1

REPORT INFORMATION
  Report Type: 
  Country: None (occurrence: None)
  Receive Date: 20120224
  Receipt Date: 20120215
  Transmission Date: 20120608
  Serious: Yes (Other)
  Sender: FDA-Public Use
  Company Number: US-JNJFOC-2007305101

PATIENT
  Age: 21 Year
  Sex: Male
  Weight: 81.65 kg

DRUGS (5)
  1. SUDACARE SHOWER SOOTHERS [Suspect]
     Indication: NASOPHARYNGITIS
     Dosage: DAILY DOSE TEXT: 2 TABLETS ONCE
     Route: 055
     Dates: start: 20070127, end: 20070127
  2. AMOXICILLIN [Concomitant]
     Indication: PHARYNGITIS
     Dosage: DAILY DOSE TEXT: 500 MG DAILY
     Route: 048
     Dates: start: 20070126
  3. ACETAMINOPHEN [Suspect]
     Indication: PRODUCT USED FOR UNKNOWN INDICATION
     Dosage: DAILY DOSE TEXT: UNSPECIFIED
     Route: 048
  4. ACETAMINOPHEN [Suspect]
     Route: 048
  5. DAYQUIL [Suspect]
     Indication: PRODUCT USED FOR UNKNOWN INDICATION
     Dosage: DAILY DOSE TEXT: UNKNOWN
     Route: 048

REACTIONS (5)
  - SKIN BURNING SENSATION [None]
  - ERYTHEMA [None]
  - PAIN [None]
  - DERMATITIS [None]
  - DRUG ADMINISTRATION ERROR [None]
